FAERS Safety Report 4345206-5 (Version None)
Quarter: 2004Q2

REPORT INFORMATION
  Report Type: 
  Country: None (occurrence: None)
  Receive Date: 20040420
  Receipt Date: 20040407
  Transmission Date: 20050107
  Serious: Yes (Hospitalization)
  Sender: FDA-Public Use
  Company Number: A-CH2004-05757

PATIENT
  Age: 33 Year
  Sex: Female

DRUGS (3)
  1. TRACLEER [Suspect]
     Indication: PULMONARY HYPERTENSION
     Dosage: 62.5 MG, EVENING, ORAL; 31.25 MG, BID, ORAL
     Route: 048
     Dates: start: 20031218, end: 20031218
  2. TRACLEER [Suspect]
     Indication: PULMONARY HYPERTENSION
     Dosage: 62.5 MG, EVENING, ORAL; 31.25 MG, BID, ORAL
     Route: 048
     Dates: start: 20031219
  3. FLOLAN (EPOPROSTERENOL SODIUM) [Concomitant]

REACTIONS (4)
  - ASTHENIA [None]
  - ERYTHEMA [None]
  - NAUSEA [None]
  - VASODILATATION [None]
